FAERS Safety Report 10595621 (Version 4)
Quarter: 2014Q4

REPORT INFORMATION
  Report Type: Report from Study
  Country: JP (occurrence: JP)
  Receive Date: 20141120
  Receipt Date: 20141222
  Transmission Date: 20150529
  Serious: Yes (Hospitalization)
  Sender: FDA-Public Use
  Company Number: JP-BAYER-2014-167439

PATIENT
  Age: 65 Year
  Sex: Male
  Weight: 76 kg

DRUGS (12)
  1. SORAFENIB (RAF KINASE INHIBITOR) [Suspect]
     Active Substance: SORAFENIB
     Indication: HEPATOCELLULAR CARCINOMA
     Dosage: DAILY DOSE 800 MG
     Route: 048
     Dates: start: 20141016, end: 20141023
  2. RESMINOSTAT [Suspect]
     Active Substance: RESMINOSTAT
     Indication: HEPATOCELLULAR CARCINOMA
     Dosage: DAILY DOSE 400 MG
     Route: 048
     Dates: start: 20141016, end: 20141023
  3. ALDACTONE [Concomitant]
     Active Substance: SPIRONOLACTONE
     Indication: OEDEMA PERIPHERAL
     Dosage: 25 MG, QD
     Route: 048
     Dates: start: 2011
  4. FUROSEMIDE. [Concomitant]
     Active Substance: FUROSEMIDE
     Indication: OEDEMA PERIPHERAL
     Dosage: 20 MG, QD
     Route: 048
     Dates: start: 2011
  5. MECOBALAMIN [Concomitant]
     Active Substance: METHYLCOBALAMIN
     Indication: MUSCLE SPASMS
     Dosage: 500 ?G, TID
     Route: 048
     Dates: start: 2011
  6. SORAFENIB (RAF KINASE INHIBITOR) [Suspect]
     Active Substance: SORAFENIB
     Indication: HEPATOCELLULAR CARCINOMA
     Dosage: DAILY DOSE 800 MG
     Route: 048
     Dates: start: 20141117, end: 20141123
  7. RESMINOSTAT [Suspect]
     Active Substance: RESMINOSTAT
     Indication: HEPATOCELLULAR CARCINOMA
     Dosage: DAILY DOSE 400 MG
     Route: 048
     Dates: start: 20141117, end: 20141123
  8. NEXIUM [Concomitant]
     Active Substance: ESOMEPRAZOLE MAGNESIUM
     Indication: GASTRITIS PROPHYLAXIS
     Dosage: 20 MG, QD
     Route: 048
     Dates: start: 201404
  9. UREPEARL [Concomitant]
     Active Substance: UREA
     Indication: PROPHYLAXIS
     Dosage: UNK, BID
     Route: 061
     Dates: start: 20141016
  10. TAMSULOSIN HYDROCHLORIDE. [Concomitant]
     Active Substance: TAMSULOSIN HYDROCHLORIDE
     Indication: BENIGN PROSTATIC HYPERPLASIA
     Dosage: 0.2 MG, QD
     Route: 048
     Dates: start: 2011
  11. AMINOLEBAN EN [Concomitant]
     Active Substance: UNSPECIFIED INGREDIENT
     Indication: HEPATIC CIRRHOSIS
     Dosage: 150 G, QD
     Route: 048
     Dates: start: 2011
  12. BESOFTEN [Concomitant]
     Active Substance: SODIUM ALGINATE
     Indication: PROPHYLAXIS
     Dosage: UNK
     Route: 061
     Dates: start: 20141016

REACTIONS (2)
  - Liver abscess [Recovering/Resolving]
  - Liver abscess [Recovering/Resolving]

NARRATIVE: CASE EVENT DATE: 20141023
